FAERS Safety Report 5291381-8 (Version None)
Quarter: 2007Q2

REPORT INFORMATION
  Report Type: 
  Country: None (occurrence: None)
  Receive Date: 20070402
  Receipt Date: 20070316
  Transmission Date: 20071010
  Serious: Yes (Hospitalization)
  Sender: FDA-Public Use
  Company Number: DSA_29638_2007

PATIENT
  Age: 86 Year
  Sex: Female

DRUGS (9)
  1. ENALAPRIL MALEATE AND HYDROCHLOROTHIAZIDE [Suspect]
     Indication: HYPERTENSION
     Dosage: 1 DF Q DAY PO
     Route: 048
     Dates: end: 20070117
  2. RILMENIDINE [Suspect]
     Indication: HYPERTENSION
     Dosage: 1 MG Q DAY PO
     Route: 048
     Dates: end: 20070117
  3. FUROSEMIDE [Suspect]
     Indication: CARDIAC FAILURE CONGESTIVE
     Dosage: 20 MG BID PO
     Route: 048
     Dates: end: 20070117
  4. FUROSEMIDE [Suspect]
     Indication: HYPERTENSION
     Dosage: 20 MG BID PO
     Route: 048
     Dates: end: 20070117
  5. AMIODARONE HCL [Concomitant]
  6. AMLODIPINE BESYLATE [Concomitant]
  7. FENOFIBRATE [Concomitant]
  8. FLUINDIONE [Concomitant]
  9. HYDROXYZINE HYDROCHLORIDE [Concomitant]

REACTIONS (4)
  - ANAEMIA [None]
  - CONDITION AGGRAVATED [None]
  - DEHYDRATION [None]
  - RENAL FAILURE ACUTE [None]
